FAERS Safety Report 17938429 (Version 3)
Quarter: 2020Q3

REPORT INFORMATION
  Report Type: Spontaneous
  Country: CA (occurrence: CA)
  Receive Date: 20200624
  Receipt Date: 20200915
  Transmission Date: 20201103
  Serious: Yes (Life-Threatening, Other)
  Sender: FDA-Public Use
  Company Number: CA-ACCORD-186690

PATIENT
  Age: 16 Year
  Sex: Male
  Weight: 57 kg

DRUGS (7)
  1. BLEOMYCIN [Suspect]
     Active Substance: BLEOMYCIN SULFATE
     Indication: PRODUCT USED FOR UNKNOWN INDICATION
     Route: 065
  2. ONDANSETRON [Suspect]
     Active Substance: ONDANSETRON
     Indication: PRODUCT USED FOR UNKNOWN INDICATION
     Route: 065
  3. VINCRISTINE [Suspect]
     Active Substance: VINCRISTINE
     Indication: PRODUCT USED FOR UNKNOWN INDICATION
     Route: 065
  4. ETOPOSIDE. [Suspect]
     Active Substance: ETOPOSIDE
     Indication: HODGKIN^S DISEASE
     Dosage: ONCE
     Route: 042
  5. DOXORUBICIN [Suspect]
     Active Substance: DOXORUBICIN
     Indication: PRODUCT USED FOR UNKNOWN INDICATION
     Route: 065
  6. CYCLOPHOSPHAMIDE/CYCLOPHOSPHAMIDE MONOHYDRATE [Suspect]
     Active Substance: CYCLOPHOSPHAMIDE
     Indication: PRODUCT USED FOR UNKNOWN INDICATION
     Route: 065
  7. VERRUBLEN [Suspect]
     Active Substance: BLEOMYCIN SULFATE
     Indication: PRODUCT USED FOR UNKNOWN INDICATION
     Route: 065

REACTIONS (4)
  - Urticaria [Recovered/Resolved]
  - Erythema [Recovered/Resolved]
  - Cough [Recovered/Resolved]
  - Dyspnoea [Recovered/Resolved]
